FAERS Safety Report 18250671 (Version 1)
Quarter: 2020Q3

REPORT INFORMATION
  Report Type: Spontaneous
  Country: IN (occurrence: IN)
  Receive Date: 20200910
  Receipt Date: 20200910
  Transmission Date: 20201103
  Serious: No
  Sender: FDA-Public Use
  Company Number: IN-TOLMAR, INC.-20IN022614

PATIENT
  Age: 52 Year
  Sex: Male

DRUGS (2)
  1. KETOCONAZOLE. [Suspect]
     Active Substance: KETOCONAZOLE
     Indication: DIABETES MELLITUS MANAGEMENT
     Route: 065
  2. OTHER THERAPEUTIC PRODUCTS [Suspect]
     Active Substance: UNSPECIFIED INGREDIENT
     Indication: ADRENOCORTICAL CARCINOMA

REACTIONS (1)
  - Off label use [Unknown]
